FAERS Safety Report 21369544 (Version 1)
Quarter: 2022Q3

REPORT INFORMATION
  Report Type: Spontaneous
  Country: DE (occurrence: DE)
  Receive Date: 20220923
  Receipt Date: 20220923
  Transmission Date: 20221027
  Serious: Yes (Other)
  Sender: FDA-Public Use
  Company Number: None

PATIENT
  Age: 62 Year
  Sex: Male
  Weight: 82 kg

DRUGS (1)
  1. PROTOPIC [Suspect]
     Active Substance: TACROLIMUS
     Indication: Neurodermatitis
     Dosage: BIS ZU ZWEIMAL T?GLICH
     Dates: start: 20120213

REACTIONS (2)
  - Hodgkin^s disease [Recovered/Resolved with Sequelae]
  - Lymphadenopathy [Unknown]

NARRATIVE: CASE EVENT DATE: 20220401
